FAERS Safety Report 5525823-7 (Version None)
Quarter: 2007Q4

REPORT INFORMATION
  Report Type: 
  Country: None (occurrence: None)
  Receive Date: 20071126
  Receipt Date: 20071116
  Transmission Date: 20080405
  Serious: Yes (Other)
  Sender: FDA-Public Use
  Company Number: GB-PFIZER INC-2007080381

PATIENT
  Sex: Male
  Weight: 63 kg

DRUGS (3)
  1. VIBRAMYCIN [Suspect]
     Indication: MALARIA PROPHYLAXIS
     Route: 048
     Dates: start: 20070726, end: 20070801
  2. ERYTHROMYCIN [Concomitant]
     Indication: ACNE
     Route: 048
  3. ZINERYT [Concomitant]
     Indication: ACNE
     Route: 061

REACTIONS (5)
  - ABDOMINAL PAIN [None]
  - APPETITE DISORDER [None]
  - DYSPEPSIA [None]
  - OESOPHAGEAL ULCER [None]
  - PHARYNGOLARYNGEAL PAIN [None]
